FAERS Safety Report 5494132-7 (Version None)
Quarter: 2007Q4

REPORT INFORMATION
  Report Type: 
  Country: None (occurrence: None)
  Receive Date: 20071022
  Receipt Date: 20071008
  Transmission Date: 20080405
  Serious: Yes (Other)
  Sender: FDA-Public Use
  Company Number: FABR-12219

PATIENT
  Age: 14 Year
  Sex: Male

DRUGS (3)
  1. FABRAZYME [Suspect]
     Indication: FABRY'S DISEASE
     Dates: start: 20070101
  2. TYLENOL (CAPLET) [Concomitant]
  3. BENADRYL [Concomitant]

REACTIONS (8)
  - ANXIETY [None]
  - INFUSION RELATED REACTION [None]
  - LARYNGEAL OEDEMA [None]
  - LIP SWELLING [None]
  - OEDEMA MOUTH [None]
  - PRURITUS [None]
  - RASH GENERALISED [None]
  - URTICARIA [None]
